FAERS Safety Report 22231612 (Version 1)
Quarter: 2023Q2

REPORT INFORMATION
  Report Type: Spontaneous
  Country: US (occurrence: US)
  Receive Date: 20230420
  Receipt Date: 20230420
  Transmission Date: 20230721
  Serious: No
  Sender: FDA-Public Use
  Company Number: US-drreddys-LIT/USA/23/0162601

PATIENT
  Age: 47 Year
  Sex: Female

DRUGS (7)
  1. LAMOTRIGINE [Suspect]
     Active Substance: LAMOTRIGINE
     Indication: Affective disorder
  2. QUETIAPINE [Suspect]
     Active Substance: QUETIAPINE
     Indication: Mania
  3. QUETIAPINE [Suspect]
     Active Substance: QUETIAPINE
     Dosage: TITRATED UPWARDS BY 100 MG EACH DAY EVENTUALLY REACHING A TOTAL OF 500 MG
  4. QUETIAPINE [Suspect]
     Active Substance: QUETIAPINE
     Dosage: TITRATED UPWARDS BY 100 MG EACH DAY
  5. ALPRAZOLAM [Suspect]
     Active Substance: ALPRAZOLAM
     Indication: Mania
  6. ALPRAZOLAM [Suspect]
     Active Substance: ALPRAZOLAM
     Dosage: TAPERED
  7. DULOXETINE [Concomitant]
     Active Substance: DULOXETINE
     Indication: Premenstrual syndrome

REACTIONS (2)
  - Somnolence [Recovering/Resolving]
  - Product use in unapproved indication [Unknown]
